FAERS Safety Report 17614957 (Version 1)
Quarter: 2020Q1

REPORT INFORMATION
  Report Type: Spontaneous
  Country: US (occurrence: US)
  Receive Date: 20200331
  Receipt Date: 20200331
  Transmission Date: 20200409
  Serious: Yes (Death)
  Sender: FDA-Public Use
  Company Number: None

PATIENT
  Age: 70 Year
  Sex: Female

DRUGS (15)
  1. DEXAMETHASONE. [Concomitant]
     Active Substance: DEXAMETHASONE
  2. CRESTOR [Concomitant]
     Active Substance: ROSUVASTATIN CALCIUM
  3. DEXILANT [Concomitant]
     Active Substance: DEXLANSOPRAZOLE
  4. ALECENSA [Suspect]
     Active Substance: ALECTINIB HYDROCHLORIDE
     Indication: LUNG NEOPLASM MALIGNANT
     Route: 048
  5. LINZESS [Concomitant]
     Active Substance: LINACLOTIDE
  6. FOLIC ACID. [Concomitant]
     Active Substance: FOLIC ACID
  7. ERGOCALCIFER [Concomitant]
  8. GABAPENTIN. [Concomitant]
     Active Substance: GABAPENTIN
  9. ELIQUIS [Concomitant]
     Active Substance: APIXABAN
  10. NEURONTIN [Concomitant]
     Active Substance: GABAPENTIN
  11. ROSUVASTATIN. [Concomitant]
     Active Substance: ROSUVASTATIN
  12. VIT D [Concomitant]
     Active Substance: VITAMIN D NOS
  13. DARIFENACIN. [Concomitant]
     Active Substance: DARIFENACIN
  14. FAMOTIDINE. [Concomitant]
     Active Substance: FAMOTIDINE
  15. FLECAINIDE [Concomitant]
     Active Substance: FLECAINIDE

REACTIONS (1)
  - Death [None]
